FAERS Safety Report 6497588-6 (Version None)
Quarter: 2009Q4

REPORT INFORMATION
  Report Type: 
  Country: None (occurrence: None)
  Receive Date: 20091215
  Receipt Date: 20091209
  Transmission Date: 20100525
  Serious: Yes (Death, Other)
  Sender: FDA-Public Use
  Company Number: HQWYE363116MAY06

PATIENT
  Sex: Female

DRUGS (4)
  1. PREMPRO [Suspect]
  2. PREMARIN [Suspect]
  3. MEDROXYPROGESTERONE [Suspect]
  4. MEDROXYPROGESTERONE ACETATE [Suspect]

REACTIONS (2)
  - ENDOMETRIAL CANCER [None]
  - OVARIAN CANCER METASTATIC [None]
